FAERS Safety Report 8714741 (Version 3)
Quarter: 2013Q2

REPORT INFORMATION
  Report Type: Spontaneous
  Country: US (occurrence: US)
  Receive Date: 20120809
  Receipt Date: 20130611
  Transmission Date: 20140414
  Serious: Yes (Hospitalization, Other)
  Sender: FDA-Public Use
  Company Number: US-BAYER-2012-078791

PATIENT
  Age: 48 Year
  Sex: Female
  Weight: 70.3 kg

DRUGS (14)
  1. YAZ [Suspect]
     Dosage: UNK
     Dates: start: 200405, end: 20100924
  2. YAZ [Suspect]
     Dosage: UNK
     Dates: start: 200906, end: 201009
  3. BUTALBITAL, ACETAMINOPHEN + CAFFEINE [Concomitant]
     Dosage: 50-325-40 MG
     Route: 048
  4. CLARITIN [Concomitant]
     Dosage: 10 MG, DAILY
     Route: 048
  5. FLONASE [Concomitant]
     Indication: MULTIPLE ALLERGIES
     Dosage: 1 SPRAY BOTH NOSTRILS, DAILY
     Route: 061
  6. IBUPROFEN [Concomitant]
  7. MUCINEX [Concomitant]
  8. MULTIVITAMIN [Concomitant]
     Dosage: 1 TABLET, DAILY
     Route: 048
  9. PATANOL [Concomitant]
     Dosage: 0.1 %, 1 DROP BOTH EYES, PRN
     Route: 061
     Dates: start: 20100628
  10. TYLENOL [Concomitant]
  11. VITAMIN D [Concomitant]
     Dosage: 400 IU, DAILY
     Route: 048
  12. ALBUTEROL [Concomitant]
     Dosage: UNK UNK, PRN
     Dates: start: 1989
  13. ZYRTEC [Concomitant]
     Indication: MULTIPLE ALLERGIES
  14. FISH OIL [Concomitant]

REACTIONS (8)
  - Superior sagittal sinus thrombosis [Recovering/Resolving]
  - Deep vein thrombosis [None]
  - Pain [None]
  - Injury [Recovering/Resolving]
  - General physical health deterioration [None]
  - Anxiety [None]
  - Emotional distress [None]
  - Pain [Recovering/Resolving]
